FAERS Safety Report 14770570 (Version 6)
Quarter: 2018Q3

REPORT INFORMATION
  Report Type: Spontaneous
  Country: DE (occurrence: DE)
  Receive Date: 20180417
  Receipt Date: 20180724
  Transmission Date: 20181010
  Serious: Yes (Death, Hospitalization, Other)
  Sender: FDA-Public Use
  Company Number: DE-009507513-1804DEU006143

PATIENT
  Age: 79 Year
  Sex: Female
  Weight: 70 kg

DRUGS (8)
  1. KEYTRUDA [Suspect]
     Active Substance: PEMBROLIZUMAB
     Dosage: UNK
     Dates: start: 20180329, end: 20180329
  2. MADOPAR [Concomitant]
     Active Substance: BENSERAZIDE HYDROCHLORIDE\LEVODOPA
     Dosage: 125 (100 MG. 25 MG) TABLETS, 2?1?1??0
     Route: 048
  3. HCT HEXAL [Concomitant]
     Active Substance: HYDROCHLOROTHIAZIDE
     Dosage: 1?0?0?0
     Route: 048
  4. BISOHEXAL [Concomitant]
     Active Substance: BISOPROLOL FUMARATE
     Dosage: 0.5?0?0?0
     Route: 048
  5. ENALAPRIL RATIOPHARM [Concomitant]
     Active Substance: ENALAPRIL
     Dosage: 1?0?0?0
     Route: 048
  6. KEYTRUDA [Suspect]
     Active Substance: PEMBROLIZUMAB
     Indication: MALIGNANT MELANOMA
     Dosage: UNK
     Dates: start: 201802
  7. DOMPERIDONE [Concomitant]
     Active Substance: DOMPERIDONE
     Dosage: 1?1?1?0
     Route: 048
  8. QUETIAPINE FUMARATE. [Concomitant]
     Active Substance: QUETIAPINE FUMARATE
     Indication: SLEEP DISORDER
     Dosage: 0.5 TABLET FOR SLEEP DISORDER AT NIGHT
     Route: 048

REACTIONS (20)
  - Musculoskeletal stiffness [Not Recovered/Not Resolved]
  - Dizziness [Recovering/Resolving]
  - Death [Fatal]
  - Oedema peripheral [Not Recovered/Not Resolved]
  - Dyspnoea [Unknown]
  - General physical health deterioration [Unknown]
  - Splenomegaly [Unknown]
  - Asthenia [Not Recovered/Not Resolved]
  - Dyspnoea exertional [Unknown]
  - Hyperbilirubinaemia [Unknown]
  - Hypoalbuminaemia [Unknown]
  - Pleural effusion [Unknown]
  - Gait disturbance [Unknown]
  - Speech disorder [Unknown]
  - Urinary tract infection [Not Recovered/Not Resolved]
  - Liver disorder [Unknown]
  - Fatigue [Unknown]
  - Ascites [Unknown]
  - Abdominal pain upper [Unknown]
  - Dysphagia [Unknown]

NARRATIVE: CASE EVENT DATE: 2018
